FAERS Safety Report 4776224-0 (Version None)
Quarter: 2005Q3

REPORT INFORMATION
  Report Type: 
  Country: None (occurrence: None)
  Receive Date: 20050914
  Receipt Date: 20050211
  Transmission Date: 20060218
  Serious: Yes (Other)
  Sender: FDA-Public Use
  Company Number: 163-20785-05020424

PATIENT

DRUGS (8)
  1. THALOMID [Suspect]
     Indication: MULTIPLE MYELOMA
     Dosage: ORAL
     Route: 048
  2. DEXAMETHASONE [Suspect]
     Indication: MULTIPLE MYELOMA
  3. PROVIGIL [Suspect]
  4. PROSCAR [Suspect]
  5. NIFEDIPINE [Suspect]
  6. DURAGESIC-100 [Suspect]
  7. METOPROLOL SUCCINATE [Suspect]
  8. OXYCODONE HCL [Suspect]

REACTIONS (1)
  - FATIGUE [None]
